FAERS Safety Report 8831642 (Version 2)
Quarter: 2012Q4

REPORT INFORMATION
  Report Type: Report from Study
  Country: JP (occurrence: JP)
  Receive Date: 20121009
  Receipt Date: 20121022
  Transmission Date: 20130627
  Serious: Yes (Other)
  Sender: FDA-Public Use
  Company Number: JP-GLAXOSMITHKLINE-B0835771A

PATIENT
  Age: 55 Year
  Sex: Female
  Weight: 59 kg

DRUGS (8)
  1. TYKERB [Suspect]
     Indication: BREAST CANCER
     Route: 048
     Dates: start: 20111115, end: 20111213
  2. TYKERB [Suspect]
     Indication: BREAST CANCER
     Route: 048
     Dates: start: 20111214, end: 20120131
  3. CARBOPLATIN [Suspect]
     Indication: BREAST CANCER
     Dosage: 450MGM2 In the morning
     Dates: start: 20111117, end: 20120118
  4. LEVOTHYROXINE NA [Concomitant]
     Indication: THYROIDITIS CHRONIC
     Route: 048
     Dates: end: 20120210
  5. HIBON [Concomitant]
     Indication: PROPHYLAXIS
     Route: 048
     Dates: start: 20111115, end: 20120210
  6. PYDOXAL [Concomitant]
     Indication: PROPHYLAXIS
     Route: 048
     Dates: start: 20111115, end: 20120210
  7. CELECOX [Concomitant]
     Indication: PAIN
     Route: 048
     Dates: start: 20111115, end: 20120210
  8. SERENACE [Concomitant]
     Indication: PAIN
     Route: 048
     Dates: start: 20111115, end: 20120210

REACTIONS (1)
  - Anaemia [Not Recovered/Not Resolved]
